FAERS Safety Report 4721502-4 (Version None)
Quarter: 2005Q3

REPORT INFORMATION
  Report Type: 
  Country: None (occurrence: None)
  Receive Date: 20050721
  Receipt Date: 20041021
  Transmission Date: 20060218
  Serious: No
  Sender: FDA-Public Use
  Company Number: US-BRISTOL-MYERS SQUIBB COMPANY-12739785

PATIENT
  Age: 70 Year
  Sex: Male
  Weight: 79 kg

DRUGS (3)
  1. COUMADIN [Suspect]
     Indication: PALPITATIONS
     Dosage: INITIATED APPROXIMATELY 1 + 1/2 WEEKS AGO
     Route: 048
     Dates: start: 20041001
  2. COUMADIN [Suspect]
     Indication: COAGULOPATHY
     Dosage: INITIATED APPROXIMATELY 1 + 1/2 WEEKS AGO
     Route: 048
     Dates: start: 20041001
  3. ATENOLOL [Concomitant]

REACTIONS (1)
  - FAECES DISCOLOURED [None]
